FAERS Safety Report 12859859 (Version 1)
Quarter: 2016Q4

REPORT INFORMATION
  Report Type: Spontaneous
  Country: US (occurrence: US)
  Receive Date: 20161018
  Receipt Date: 20161018
  Transmission Date: 20170207
  Serious: No
  Sender: FDA-Public Use
  Company Number: US-009507513-1610USA005529

PATIENT
  Age: 8 Year
  Sex: Male

DRUGS (1)
  1. DULERA [Suspect]
     Active Substance: FORMOTEROL FUMARATE DIHYDRATE\MOMETASONE FUROATE
     Indication: ASTHMA
     Dosage: 2 PUFFS IN THE MORNING AND BEFORE BED
     Route: 055
     Dates: start: 2014

REACTIONS (5)
  - Headache [Recovered/Resolved]
  - Adenoidal hypertrophy [Recovered/Resolved]
  - Asthma [Recovered/Resolved]
  - Tonsillar hypertrophy [Recovered/Resolved]
  - Asthma [Recovered/Resolved]

NARRATIVE: CASE EVENT DATE: 201502
